FAERS Safety Report 5262243-7 (Version None)
Quarter: 2007Q1

REPORT INFORMATION
  Report Type: 
  Country: None (occurrence: None)
  Receive Date: 20070312
  Receipt Date: 20070227
  Transmission Date: 20070707
  Serious: Yes (Hospitalization, Other)
  Sender: FDA-Public Use
  Company Number: US-NOVOPROD-257837

PATIENT
  Sex: Female
  Weight: 79.819 kg

DRUGS (10)
  1. VAGIFEM [Suspect]
     Indication: VULVOVAGINAL DRYNESS
     Dosage: 1 TAB, QD
     Route: 067
     Dates: start: 20060921, end: 20061005
  2. VAGIFEM [Suspect]
     Dosage: 1 TAB, BIW
     Route: 067
     Dates: start: 20061006, end: 20061001
  3. VAGIFEM [Suspect]
     Dosage: UNKNOWN
     Route: 067
     Dates: start: 20061001, end: 20061001
  4. VAGIFEM [Suspect]
     Dosage: UNKNOWN
     Route: 067
     Dates: start: 20061001
  5. NOVOLOG [Concomitant]
     Dosage: 26 IU, QD + SLIDING SCALE
     Route: 058
  6. PREVACID [Concomitant]
     Route: 048
     Dates: start: 19960101
  7. VALTREX [Concomitant]
     Dosage: UNK, PRN
     Route: 048
  8. DIOVAN                             /01319601/ [Concomitant]
     Indication: HYPERTENSION
     Route: 048
     Dates: start: 20040101
  9. HYDROCHLOROTHIAZIDE [Concomitant]
     Indication: HYPERTENSION
     Route: 048
     Dates: start: 20040101, end: 20061009
  10. VIVELLE-DOT [Concomitant]
     Indication: NIGHT SWEATS
     Dates: start: 20060201

REACTIONS (5)
  - BLOOD GLUCOSE INCREASED [None]
  - BLOOD PRESSURE INCREASED [None]
  - CLUSTER HEADACHE [None]
  - DIZZINESS [None]
  - NAUSEA [None]
